FAERS Safety Report 14445943 (Version 5)
Quarter: 2019Q2

REPORT INFORMATION
  Report Type: Report from Study
  Country: US (occurrence: US)
  Receive Date: 20180126
  Receipt Date: 20190625
  Transmission Date: 20190711
  Serious: Yes (Other)
  Sender: FDA-Public Use
  Company Number: PHHY2018US009266

PATIENT
  Age: 56 Year
  Sex: Female

DRUGS (1)
  1. GILENYA [Suspect]
     Active Substance: FINGOLIMOD HYDROCHLORIDE
     Indication: MULTIPLE SCLEROSIS
     Dosage: UNK, QD
     Route: 048

REACTIONS (10)
  - Lymphocyte count decreased [Unknown]
  - Anal incontinence [Recovered/Resolved]
  - Peripheral swelling [Unknown]
  - Balance disorder [Recovered/Resolved]
  - Xerosis [Unknown]
  - White blood cell count decreased [Unknown]
  - Asthenia [Recovered/Resolved]
  - Pain in extremity [Unknown]
  - Hemianaesthesia [Recovered/Resolved]
  - Dizziness [Recovered/Resolved]

NARRATIVE: CASE EVENT DATE: 20171108
